FAERS Safety Report 7315652-6 (Version None)
Quarter: 2011Q1

REPORT INFORMATION
  Report Type: 
  Country: None (occurrence: None)
  Receive Date: 20110215
  Receipt Date: 20110204
  Transmission Date: 20110831
  Serious: Yes (Disabling, Other)
  Sender: FDA-Public Use
  Company Number: VISP-NO-1005S-0262

PATIENT
  Age: 58 Year
  Sex: Female

DRUGS (9)
  1. TERBUTALINE SULFATE (BRICANYL TURBUHALER) [Concomitant]
  2. ESCITALOPRAM (CIPRALEX) [Concomitant]
  3. VISIPAQUE [Suspect]
     Indication: PRODUCT USED FOR UNKNOWN INDICATION
     Dosage: 80 ML, SINGLE DOSE, I.V.; 100 ML, SINGLE DOSE,
     Route: 042
     Dates: start: 20090912, end: 20090912
  4. VISIPAQUE [Suspect]
     Indication: PRODUCT USED FOR UNKNOWN INDICATION
     Dosage: 80 ML, SINGLE DOSE, I.V.; 100 ML, SINGLE DOSE,
     Route: 042
     Dates: start: 20100318, end: 20100318
  5. CETIRIZINE HCL [Concomitant]
  6. PANTOPRAZOLE SODIUM [Concomitant]
  7. ZYRTEC [Concomitant]
  8. KLIOGEST (ACTIVELLE) [Concomitant]
  9. LIPITAC (OMEGA-3) [Concomitant]

REACTIONS (19)
  - RASH GENERALISED [None]
  - OEDEMA [None]
  - MYALGIA [None]
  - HEPATIC ENZYME INCREASED [None]
  - ORAL PAIN [None]
  - TENDON PAIN [None]
  - NAUSEA [None]
  - INSOMNIA [None]
  - RASH PRURITIC [None]
  - FATIGUE [None]
  - BLOOD URINE PRESENT [None]
  - ANTI-CYCLIC CITRULLINATED PEPTIDE ANTIBODY POSITIVE [None]
  - GLOMERULAR FILTRATION RATE DECREASED [None]
  - ECZEMA [None]
  - RASH ERYTHEMATOUS [None]
  - MALAISE [None]
  - MUSCLE SPASMS [None]
  - PYREXIA [None]
  - VOMITING [None]
